FAERS Safety Report 5707131-4 (Version None)
Quarter: 2008Q2

REPORT INFORMATION
  Report Type: 
  Country: None (occurrence: None)
  Receive Date: 20080416
  Receipt Date: 20080404
  Transmission Date: 20081010
  Serious: Yes (Hospitalization)
  Sender: FDA-Public Use
  Company Number: FR-ROCHE-556993

PATIENT
  Sex: Female

DRUGS (3)
  1. RIBAVIRIN [Suspect]
     Dosage: TEMPORARILY STOPPED
     Route: 048
     Dates: start: 20080211, end: 20080403
  2. PEGASYS [Suspect]
     Route: 058
     Dates: start: 20080211
  3. VX-950 [Suspect]
     Dosage: PERMANENTLY STOPPED
     Route: 048
     Dates: start: 20080211, end: 20080403

REACTIONS (3)
  - HYPERTHERMIA [None]
  - RASH [None]
  - RENAL FAILURE [None]
